FAERS Safety Report 9632710 (Version 3)
Quarter: 2014Q2

REPORT INFORMATION
  Report Type: Spontaneous
  Country: US (occurrence: US)
  Receive Date: 20131018
  Receipt Date: 20140619
  Transmission Date: 20141212
  Serious: Yes (Other)
  Sender: FDA-Public Use
  Company Number: US-PFIZER INC-2013295267

PATIENT
  Age: 60 Year
  Sex: Female
  Weight: 95.24 kg

DRUGS (15)
  1. CELEBREX [Suspect]
     Indication: ARTHRALGIA
     Dosage: 200 MG, 2X/DAY
     Route: 048
     Dates: end: 2013
  2. CELEBREX [Suspect]
     Dosage: 200 MG, 2X/DAY
     Route: 048
     Dates: start: 20140527
  3. NEURONTIN [Suspect]
     Dosage: 300 MG, 3X/DAY
     Dates: start: 20140527
  4. LEVOTHYROXINE [Concomitant]
     Dosage: UNK
  5. PROZAC [Concomitant]
     Indication: DEPRESSION
     Dosage: 40 MG, DAILY
     Route: 048
     Dates: start: 20140527
  6. CLOTRIMAZOLE [Concomitant]
     Dosage: 1%, AS NEEDED (APPLY TO THE AFFECTED AREA TWICE DAILY IF NEEDED).
     Dates: start: 20130709
  7. SUDAFED [Concomitant]
     Dosage: 30 MG, 2X/DAY (EVERY TWELVE HOURS AS INDICATED)
     Route: 048
     Dates: start: 20130813
  8. IMODIUM A-D [Concomitant]
     Indication: DIARRHOEA
     Dosage: 2 MG, AS NEEDED
     Route: 048
     Dates: start: 20130918
  9. ADVAIR DISKUS [Concomitant]
     Dosage: 1 DF, 2X/DAY
     Route: 055
     Dates: start: 20131007
  10. LEVOTHROID [Concomitant]
     Dosage: 125 UG, DAILY
     Route: 048
     Dates: start: 20140408
  11. AMITRIPTYLINE HYDROCHLORIDE [Concomitant]
     Dosage: 25 MG, 3X/DAY
     Route: 048
     Dates: start: 20130408
  12. TRAMADOL HYDROCHLORIDE [Concomitant]
     Dosage: 50 MG, AS NEEDED (ONE TABLET EVERY TWELVE HOURS AS NEEDED)
     Route: 048
     Dates: start: 20140408
  13. METFORMIN HCL [Concomitant]
     Dosage: 1.5 DF, 2X/DAY
     Route: 048
     Dates: start: 20140408
  14. GLUCERNA [Concomitant]
     Dosage: 2 DF, DAILY (2CANS DAILY)
     Dates: start: 20140408
  15. NAPROXEN [Concomitant]
     Dosage: 500 MG, 2X/DAY
     Dates: start: 20140513

REACTIONS (7)
  - Hepatic cirrhosis [Recovered/Resolved]
  - Blood cholesterol [Unknown]
  - Liver disorder [Recovered/Resolved]
  - Hepatic steatosis [Recovered/Resolved]
  - Blood cholesterol increased [Recovered/Resolved]
  - Weight increased [Unknown]
  - Diabetes mellitus [Unknown]
